FAERS Safety Report 16178871 (Version 1)
Quarter: 2019Q2

REPORT INFORMATION
  Report Type: Spontaneous
  Country: IT (occurrence: IT)
  Receive Date: 20190410
  Receipt Date: 20190410
  Transmission Date: 20190711
  Serious: Yes (Other)
  Sender: FDA-Public Use
  Company Number: IT-TEVA-2019-IT-1032641

PATIENT
  Age: 66 Year
  Sex: Male

DRUGS (1)
  1. RYTMONORM [Suspect]
     Active Substance: PROPAFENONE
     Indication: ARRHYTHMIA
     Dosage: 300 MG ONCE A DAY AND 150 MG TWICE A DAY, FROM ABOUT 1 WEEK
     Route: 065

REACTIONS (5)
  - Dysentery [Unknown]
  - Discomfort [Unknown]
  - Nausea [Unknown]
  - Taste disorder [Unknown]
  - Headache [Unknown]
